FAERS Safety Report 10758329 (Version 1)
Quarter: 2015Q1

REPORT INFORMATION
  Report Type: Spontaneous
  Country: US (occurrence: US)
  Receive Date: 20150203
  Receipt Date: 20150203
  Transmission Date: 20150721
  Serious: Yes (Other)
  Sender: FDA-Public Use
  Company Number: US-PFIZER INC-2015034818

PATIENT
  Age: 57 Year
  Sex: Female
  Weight: 77.55 kg

DRUGS (16)
  1. TESSALON [Concomitant]
     Active Substance: BENZONATATE
     Dosage: 100 MG, 3 TIMES DAILY AS NEEDED
     Route: 048
  2. ANTIVERT [Concomitant]
     Active Substance: MECLIZINE HYDROCHLORIDE
     Dosage: 25 MG, 3 TIMES DAILY AS NEEDED
     Route: 048
  3. LETAIRIS [Concomitant]
     Active Substance: AMBRISENTAN
     Dosage: 10 MG, DAILY
     Route: 048
  4. COUMADIN [Concomitant]
     Active Substance: WARFARIN SODIUM
     Dosage: 1 MG, DAILY
     Route: 048
  5. COMPAZINE [Concomitant]
     Active Substance: PROCHLORPERAZINE MALEATE
     Dosage: 10 MG BY MOUTH EVERY 6 HOURS AS NEEDED
     Route: 048
  6. AVAPRO [Concomitant]
     Active Substance: IRBESARTAN
     Dosage: 150 MG, DAILY
     Route: 048
  7. ASPIRIN. [Concomitant]
     Active Substance: ASPIRIN
     Dosage: 325 MG, DAILY
     Route: 048
  8. ASTELIN [Concomitant]
     Active Substance: AZELASTINE HYDROCHLORIDE
     Dosage: 1 SPRAY IN EACH NOSTRIL, TWO TIMES DAILY
     Route: 045
  9. REVATIO [Suspect]
     Active Substance: SILDENAFIL CITRATE
     Indication: PULMONARY HYPERTENSION
     Dosage: 20 MG, 3X/DAY
     Route: 048
  10. NORCO [Concomitant]
     Active Substance: ACETAMINOPHEN\HYDROCODONE BITARTRATE
     Dosage: 10-325 MG PER TABLET 1 TABLET AS NEEDED
     Route: 048
  11. PROAIR HFA [Concomitant]
     Active Substance: ALBUTEROL SULFATE
     Dosage: INHALE 1 PUFF TWO TIMES DAILY
     Route: 055
  12. NEXIUM [Concomitant]
     Active Substance: ESOMEPRAZOLE MAGNESIUM
     Dosage: 40 MG, EVERY MORNING BEFORE BREAKFAST
     Route: 048
  13. ADVAIR DISKUS [Concomitant]
     Active Substance: FLUTICASONE PROPIONATE\SALMETEROL XINAFOATE
     Dosage: 1 PUFF BY INHALATION, EVERY 12 HOURS
     Route: 055
  14. AUGMENTIN [Concomitant]
     Active Substance: AMOXICILLIN\CLAVULANATE POTASSIUM
     Dosage: 876-125 MG PER TABLET-1 TABLET, TWO TIMES DAILY
     Route: 048
  15. CELEXA [Concomitant]
     Active Substance: CITALOPRAM HYDROBROMIDE
     Dosage: 60 MG, DAILY
     Route: 048
  16. CALCIUM CARBONATE W/VITAMIN D [Concomitant]
     Dosage: 1 TABLET, DAILY
     Route: 048

REACTIONS (14)
  - Chest pain [Unknown]
  - Condition aggravated [Unknown]
  - Dyspnoea [Unknown]
  - Productive cough [Unknown]
  - Wheezing [Unknown]
  - Fatigue [Unknown]
  - Dizziness [Unknown]
  - Raynaud^s phenomenon [Unknown]
  - Chest discomfort [Unknown]
  - Sputum discoloured [Unknown]
  - Flushing [Unknown]
  - Aortic stenosis [Unknown]
  - Vertigo [Unknown]
  - Rales [Unknown]
